FAERS Safety Report 9543345 (Version 1)
Quarter: 2013Q3

REPORT INFORMATION
  Report Type: Spontaneous
  Country: GR (occurrence: GR)
  Receive Date: 20130923
  Receipt Date: 20130923
  Transmission Date: 20140515
  Serious: Yes (Other)
  Sender: FDA-Public Use
  Company Number: GR-PFIZER INC-2013269597

PATIENT
  Age: 78 Year
  Sex: Female

DRUGS (3)
  1. EFEXOR XR [Suspect]
     Indication: MAJOR DEPRESSION
     Dosage: 75 MG, UNK
     Dates: end: 201309
  2. HYDROCHLOROTHIAZIDE/OLMESARTAN MEDOXOMIL [Concomitant]
     Dosage: UNK
  3. SALOSPIR [Concomitant]
     Dosage: UNK

REACTIONS (4)
  - Intraocular pressure increased [Unknown]
  - Visual impairment [Unknown]
  - Blood pressure increased [Unknown]
  - Product quality issue [Unknown]
